FAERS Safety Report 11336336 (Version 1)
Quarter: 2015Q3

REPORT INFORMATION
  Report Type: Spontaneous
  Country: US (occurrence: None)
  Receive Date: 20150731
  Receipt Date: 20150731
  Transmission Date: 20151125
  Serious: Yes (Life-Threatening, Hospitalization)
  Sender: FDA-Public Use
  Company Number: None

PATIENT
  Age: 75 Year
  Sex: Male
  Weight: 83.7 kg

DRUGS (1)
  1. EPOETIN ALFA [Suspect]
     Active Substance: ERYTHROPOIETIN
     Indication: ANAEMIA
     Dosage: 2000 UNITS
     Route: 058
     Dates: start: 20080307, end: 20120508

REACTIONS (2)
  - Cardiac failure congestive [None]
  - Acute myocardial infarction [None]

NARRATIVE: CASE EVENT DATE: 20120409
